FAERS Safety Report 15211732 (Version 1)
Quarter: 2018Q3

REPORT INFORMATION
  Report Type: Spontaneous
  Country: DE (occurrence: DE)
  Receive Date: 20180729
  Receipt Date: 20180729
  Transmission Date: 20181010
  Serious: Yes (Other)
  Sender: FDA-Public Use
  Company Number: PHHY2018DE053145

PATIENT
  Sex: Female
  Weight: 63 kg

DRUGS (1)
  1. BISOPROLOL 1A PHARMA [Suspect]
     Active Substance: BISOPROLOL
     Indication: PRODUCT USED FOR UNKNOWN INDICATION
     Dosage: UNK
     Route: 048

REACTIONS (4)
  - Cardiovascular insufficiency [Unknown]
  - Cardiovascular disorder [Unknown]
  - Confusional state [Unknown]
  - Depression [Unknown]
